FAERS Safety Report 4588607-2 (Version None)
Quarter: 2005Q1

REPORT INFORMATION
  Report Type: 
  Country: None (occurrence: None)
  Receive Date: 20050222
  Receipt Date: 20050125
  Transmission Date: 20050727
  Serious: Yes (Other)
  Sender: FDA-Public Use
  Company Number: PHNU2005DE00682

PATIENT
  Age: 65 Year
  Sex: Male
  Weight: 89 kg

DRUGS (3)
  1. IMMUNOSPORIN [Suspect]
     Dosage: UNK, UNK
     Route: 048
     Dates: start: 20041126, end: 20041129
  2. METHOTREXATE [Concomitant]
     Dosage: 25MG/WEEK
     Dates: start: 20040701
  3. PREDNISOLONE [Concomitant]
     Dosage: 5 MG, QD
     Dates: start: 20040701

REACTIONS (2)
  - HYPERTENSION [None]
  - HYPERTENSIVE CRISIS [None]
